FAERS Safety Report 10453373 (Version 1)
Quarter: 2014Q3

REPORT INFORMATION
  Report Type: Spontaneous
  Country: GB (occurrence: GB)
  Receive Date: 20140915
  Receipt Date: 20140915
  Transmission Date: 20150326
  Serious: Yes (Hospitalization)
  Sender: FDA-Public Use
  Company Number: PHHY2014GB112249

PATIENT
  Age: 61 Year
  Sex: Female

DRUGS (4)
  1. LOPERAMIDE [Concomitant]
     Active Substance: LOPERAMIDE
  2. OMEPRAZOLE. [Suspect]
     Active Substance: OMEPRAZOLE
  3. PREDNISOLONE. [Concomitant]
     Active Substance: PREDNISOLONE
  4. MESALAMINE. [Concomitant]
     Active Substance: MESALAMINE

REACTIONS (12)
  - Blood electrolytes abnormal [Recovered/Resolved]
  - Decreased appetite [Unknown]
  - Hypomagnesaemia [Unknown]
  - Asthenia [Unknown]
  - Tachycardia [Unknown]
  - Vomiting [Unknown]
  - Hypocalcaemia [Recovered/Resolved]
  - Blood pressure decreased [Unknown]
  - Hypovolaemia [Unknown]
  - Paraesthesia [Unknown]
  - Chvostek^s sign [Unknown]
  - Tetany [Unknown]
